FAERS Safety Report 7800195-3 (Version None)
Quarter: 2011Q4

REPORT INFORMATION
  Report Type: 
  Country: None (occurrence: None)
  Receive Date: 20111006
  Receipt Date: 20110930
  Transmission Date: 20120403
  Serious: Yes (Hospitalization, Other)
  Sender: FDA-Public Use
  Company Number: JP-BAYER-200910915BYL

PATIENT
  Age: 57 Year
  Sex: Male
  Weight: 63 kg

DRUGS (8)
  1. NEXAVAR [Suspect]
     Indication: RENAL CELL CARCINOMA STAGE IV
     Dosage: UNK UNK, BID
     Route: 048
     Dates: start: 20080916, end: 20081125
  2. MUCODYNE [Concomitant]
     Dosage: AFTER EVERY MEAL
     Route: 048
     Dates: start: 20081125
  3. NEXAVAR [Suspect]
     Dosage: UNK
     Route: 048
     Dates: start: 20090120, end: 20090225
  4. MUCOSTA [Concomitant]
     Indication: GASTRITIS PROPHYLAXIS
     Dosage: AFTER BREAKFAST AND DINNER
     Route: 048
     Dates: start: 20081125
  5. MUCOSTA [Concomitant]
     Dosage: 100 MG, TID
     Dates: start: 20090225
  6. TRANEXAMIC ACID [Concomitant]
     Dosage: AFTER EVERY MEAL
     Route: 048
     Dates: start: 20081125
  7. ADONA [Concomitant]
     Dosage: AFTER EVERY MEAL
     Route: 048
     Dates: start: 20081125
  8. LEVOFLOXACIN [Concomitant]
     Dosage: AFTER EVERY MEAL
     Route: 048
     Dates: start: 20090225

REACTIONS (7)
  - PNEUMONIA [None]
  - HYPERTENSION [None]
  - ALOPECIA [None]
  - PALMAR-PLANTAR ERYTHRODYSAESTHESIA SYNDROME [None]
  - HYPERCALCAEMIA [None]
  - HYPOPHOSPHATAEMIA [None]
  - PLEURAL EFFUSION [None]
